FAERS Safety Report 8580202-3 (Version None)
Quarter: 2012Q3

REPORT INFORMATION
  Report Type: 
  Country: None (occurrence: None)
  Receive Date: 20120808
  Receipt Date: 20070927
  Transmission Date: 20120928
  Serious: Yes (Other)
  Sender: FDA-Public Use
  Company Number: CO-PFIZER INC-2012190016

PATIENT
  Age: 70 Year
  Sex: Female

DRUGS (7)
  1. METOPROLOL TARTRATE [Concomitant]
     Dosage: 100 MG, 2X/DAY
  2. LIPITOR [Suspect]
     Indication: DYSLIPIDAEMIA
     Dosage: 20 MG, 1X/DAY
  3. ACETYLSALICYLIC ACID [Concomitant]
     Dosage: 100 MG, 1X/DAY
  4. ENALAPRIL MALEATE [Concomitant]
     Dosage: 20 MG, 2X/DAY
  5. LIPITOR [Suspect]
     Dosage: 10 MG, 1X/DAY
  6. OLMESARTAN MEDOXOMIL [Suspect]
     Indication: HYPERTENSION
     Dosage: 20 MG, 1X/DAY
  7. QUINAPRIL AND HYDROCHLOROTHIAZIDE [Suspect]
     Indication: HYPERTENSION
     Dosage: QUINAPRIL/HYDROCHLOROTHIAZIDE 20/12,5, 1X/DAY

REACTIONS (1)
  - HYPERTENSIVE EMERGENCY [None]
